FAERS Safety Report 8299186-0 (Version None)
Quarter: 2012Q2

REPORT INFORMATION
  Report Type: 
  Country: None (occurrence: None)
  Receive Date: 20120419
  Receipt Date: 20120410
  Transmission Date: 20120825
  Serious: Yes (Other)
  Sender: FDA-Public Use
  Company Number: FR-ACTELION-A-CH2012-63999

PATIENT
  Sex: Female

DRUGS (2)
  1. ADCIRCA [Suspect]
     Dosage: 20 MG, UNK
  2. TRACLEER [Suspect]
     Indication: PULMONARY ARTERIAL HYPERTENSION
     Dosage: 62.5 MG, UNK
     Route: 048

REACTIONS (4)
  - CONCOMITANT DISEASE AGGRAVATED [None]
  - GASTROINTESTINAL HAEMORRHAGE [None]
  - HEREDITARY HAEMORRHAGIC TELANGIECTASIA [None]
  - FISTULA [None]
